FAERS Safety Report 16010103 (Version 3)
Quarter: 2019Q1

REPORT INFORMATION
  Report Type: Spontaneous
  Country: GB (occurrence: GB)
  Receive Date: 20190225
  Receipt Date: 20190308
  Transmission Date: 20190418
  Serious: Yes (Other)
  Sender: FDA-Public Use
  Company Number: GB-ROCHE-2268852

PATIENT
  Age: 43 Year
  Sex: Female

DRUGS (8)
  1. AZATHIOPRINE. [Concomitant]
     Active Substance: AZATHIOPRINE
     Indication: ARTHRALGIA
     Route: 065
  2. AZATHIOPRINE. [Concomitant]
     Active Substance: AZATHIOPRINE
     Indication: LIVER DISORDER
     Route: 065
  3. CYCLOPHOSPHAMIDE. [Suspect]
     Active Substance: CYCLOPHOSPHAMIDE
     Indication: ANTIPHOSPHOLIPID SYNDROME
     Route: 065
  4. WARFARIN [Concomitant]
     Active Substance: WARFARIN
     Indication: AXILLARY VEIN THROMBOSIS
  5. AZATHIOPRINE. [Concomitant]
     Active Substance: AZATHIOPRINE
     Indication: VASCULITIS
     Route: 065
  6. AZATHIOPRINE. [Concomitant]
     Active Substance: AZATHIOPRINE
     Indication: ACUTE KIDNEY INJURY
     Route: 065
  7. RITUXIMAB. [Suspect]
     Active Substance: RITUXIMAB
     Indication: ANTIPHOSPHOLIPID SYNDROME
     Route: 065
  8. WARFARIN [Concomitant]
     Active Substance: WARFARIN
     Indication: ANTIPHOSPHOLIPID SYNDROME
     Route: 065

REACTIONS (8)
  - Pituitary infarction [Recovering/Resolving]
  - Eye haemorrhage [Recovering/Resolving]
  - Product use in unapproved indication [Unknown]
  - Retinal infarction [Recovering/Resolving]
  - Pituitary haemorrhage [Recovering/Resolving]
  - Cerebellar haemorrhage [Recovering/Resolving]
  - Off label use [Unknown]
  - Cerebellar infarction [Recovering/Resolving]
